FAERS Safety Report 7006293-9 (Version None)
Quarter: 2010Q3

REPORT INFORMATION
  Report Type: 
  Country: None (occurrence: None)
  Receive Date: 20100921
  Receipt Date: 20100825
  Transmission Date: 20110219
  Serious: No
  Sender: FDA-Public Use
  Company Number: US-PFIZER INC-2010107945

PATIENT
  Sex: Female

DRUGS (1)
  1. ARTHROTEC [Suspect]
     Indication: ARTHRALGIA
     Dosage: UNK

REACTIONS (3)
  - DIARRHOEA [None]
  - GENERAL PHYSICAL CONDITION ABNORMAL [None]
  - NAUSEA [None]
